FAERS Safety Report 8863847 (Version 1)
Quarter: 2012Q4

REPORT INFORMATION
  Report Type: 
  Country: US (occurrence: US)
  Receive Date: 20121024
  Receipt Date: 20121024
  Transmission Date: 20130627
  Serious: No
  Sender: FDA-Public Use
  Company Number: US-AMGEN-USASP2011064406

PATIENT
  Age: 73 Year
  Sex: Male

DRUGS (5)
  1. ENBREL [Suspect]
     Indication: PRODUCT USED FOR UNKNOWN INDICATION
     Dosage: 50 mg, qwk
     Route: 058
  2. ASACOL [Concomitant]
     Dosage: 400 mg, UNK
  3. DILTIAZEM [Concomitant]
     Dosage: 120 mg, UNK
  4. OXYCODONE [Concomitant]
     Dosage: 5 mg, UNK
  5. MULTITABS [Concomitant]

REACTIONS (1)
  - Arthralgia [Unknown]
